FAERS Safety Report 6211334-2 (Version None)
Quarter: 2009Q2

REPORT INFORMATION
  Report Type: 
  Country: None (occurrence: None)
  Receive Date: 20090522
  Receipt Date: 20090122
  Transmission Date: 20091009
  Serious: No
  Sender: FDA-Public Use
  Company Number: 8041630

PATIENT
  Age: 28 Year
  Sex: Male
  Weight: 52.1 kg

DRUGS (9)
  1. CIMZIA [Suspect]
     Indication: CROHN'S DISEASE
     Dosage: 400 MG SC
     Route: 058
     Dates: start: 20080701
  2. KLONOPIN [Concomitant]
  3. EFFEXOR [Concomitant]
  4. WELLBUTRIN XL [Concomitant]
  5. DURAGESIC-100 [Concomitant]
  6. IBUPROFEN [Concomitant]
  7. ROXICET [Concomitant]
  8. GAS X [Concomitant]
  9. LACTAID [Concomitant]

REACTIONS (5)
  - ABDOMINAL PAIN [None]
  - DECREASED APPETITE [None]
  - DRUG INEFFECTIVE [None]
  - FATIGUE [None]
  - INTESTINAL FUNCTIONAL DISORDER [None]
